FAERS Safety Report 10208349 (Version 1)
Quarter: 2014Q2

REPORT INFORMATION
  Report Type: Spontaneous
  Country: US (occurrence: US)
  Receive Date: 20140530
  Receipt Date: 20140530
  Transmission Date: 20141212
  Serious: No
  Sender: FDA-Public Use
  Company Number: US-ENDO PHARMACEUTICALS INC.-SPLN20130084

PATIENT
  Age: 9 Year
  Sex: Female

DRUGS (1)
  1. SUPPRELIN LA [Suspect]
     Indication: PRECOCIOUS PUBERTY
     Route: 058

REACTIONS (5)
  - Pituitary tumour [Unknown]
  - Pituitary cyst [Unknown]
  - Blood triglycerides increased [Unknown]
  - Joint injury [Unknown]
  - Growth accelerated [Unknown]
